FAERS Safety Report 25118128 (Version 1)
Quarter: 2025Q1

REPORT INFORMATION
  Report Type: Spontaneous
  Country: GB (occurrence: GB)
  Receive Date: 20250325
  Receipt Date: 20250325
  Transmission Date: 20250408
  Serious: Yes (Hospitalization)
  Sender: MSN LABORATORIES PRIVATE LIMITED
  Company Number: GB-UKI-GBR/2025/03/003551

PATIENT

DRUGS (1)
  1. PREGABALIN [Suspect]
     Active Substance: PREGABALIN
     Indication: Pain
     Dosage: TWICE DAILY
     Route: 048

REACTIONS (3)
  - Fall [Unknown]
  - Drug intolerance [Unknown]
  - Dizziness [Unknown]
